FAERS Safety Report 18627221 (Version 12)
Quarter: 2025Q3

REPORT INFORMATION
  Report Type: Report from Study
  Country: US (occurrence: US)
  Receive Date: 20201217
  Receipt Date: 20250816
  Transmission Date: 20251021
  Serious: Yes (Hospitalization, Other)
  Sender: TAKEDA
  Company Number: US-SHIRE-US201933949AA

PATIENT
  Sex: Female
  Weight: 59 kg

DRUGS (8)
  1. ICATIBANT [Suspect]
     Active Substance: ICATIBANT ACETATE
     Indication: Immune system disorder
  2. ICATIBANT [Suspect]
     Active Substance: ICATIBANT ACETATE
  3. TAKHZYRO [Suspect]
     Active Substance: LANADELUMAB-FLYO
     Indication: Immune system disorder
     Dosage: 300 MILLIGRAM, Q2WEEKS
     Dates: start: 202210
  4. TAKHZYRO [Suspect]
     Active Substance: LANADELUMAB-FLYO
     Dosage: 300 MILLIGRAM, Q2WEEKS
     Dates: start: 20221002
  5. TAKHZYRO [Suspect]
     Active Substance: LANADELUMAB-FLYO
     Dosage: 300 MILLIGRAM, Q2WEEKS
  6. KALBITOR [Suspect]
     Active Substance: ECALLANTIDE
     Indication: Immune system disorder
  7. HAEGARDA [Concomitant]
     Active Substance: HUMAN C1-ESTERASE INHIBITOR
  8. EPINEPHRINE [Concomitant]
     Active Substance: EPINEPHRINE

REACTIONS (4)
  - Weight decreased [Unknown]
  - Intestinal obstruction [Unknown]
  - Hereditary angioedema [Recovered/Resolved]
  - Weight fluctuation [Unknown]
